FAERS Safety Report 21853634 (Version 1)
Quarter: 2023Q1

REPORT INFORMATION
  Report Type: Spontaneous
  Country: US (occurrence: US)
  Receive Date: 20230112
  Receipt Date: 20230112
  Transmission Date: 20230417
  Serious: No
  Sender: FDA-Public Use
  Company Number: US-SA-SAC20230111000695

PATIENT
  Age: 44 Year
  Sex: Male

DRUGS (11)
  1. DUPIXENT [Suspect]
     Active Substance: DUPILUMAB
     Indication: Asthma
     Dosage: 300 MG, QOW
     Route: 058
     Dates: start: 20190806
  2. BREO ELLIPTA [Concomitant]
     Active Substance: FLUTICASONE FUROATE\VILANTEROL TRIFENATATE
  3. ABILIFY [Concomitant]
     Active Substance: ARIPIPRAZOLE
  4. ALBUTEROL [Concomitant]
     Active Substance: ALBUTEROL
  5. LAMICTAL XR [Concomitant]
     Active Substance: LAMOTRIGINE
  6. LOSARTAN [Concomitant]
     Active Substance: LOSARTAN
  7. MONTELUKAST [Concomitant]
     Active Substance: MONTELUKAST SODIUM
  8. QVAR REDIHALER [Concomitant]
     Active Substance: BECLOMETHASONE DIPROPIONATE
  9. SPIRIVA [Concomitant]
     Active Substance: TIOTROPIUM BROMIDE MONOHYDRATE
  10. VICTOZA [Concomitant]
     Active Substance: LIRAGLUTIDE
  11. ZOLOFT [Concomitant]
     Active Substance: SERTRALINE HYDROCHLORIDE

REACTIONS (2)
  - Asthma [Recovered/Resolved]
  - Impaired quality of life [Recovered/Resolved]

NARRATIVE: CASE EVENT DATE: 20230101
